FAERS Safety Report 10244529 (Version 1)
Quarter: 2014Q2

REPORT INFORMATION
  Report Type: Spontaneous
  Country: AR (occurrence: AR)
  Receive Date: 20140618
  Receipt Date: 20140618
  Transmission Date: 20141212
  Serious: Yes (Other)
  Sender: FDA-Public Use
  Company Number: AR-PFIZER INC-2014161355

PATIENT
  Age: 4 Year
  Sex: Male

DRUGS (1)
  1. MOROCTOCOG ALFA [Suspect]
     Indication: FACTOR VIII DEFICIENCY
     Dosage: 500 UL, 3 TIMES WEEKLY
     Route: 058
     Dates: start: 20121002

REACTIONS (1)
  - Haemarthrosis [Recovered/Resolved]
